FAERS Safety Report 4366367-8 (Version None)
Quarter: 2004Q2

REPORT INFORMATION
  Report Type: 
  Country: None (occurrence: None)
  Receive Date: 20040527
  Receipt Date: 20040116
  Transmission Date: 20050107
  Serious: No
  Sender: FDA-Public Use
  Company Number: US-GLAXOSMITHKLINE-A0493566A

PATIENT
  Age: 59 Year
  Sex: Female

DRUGS (14)
  1. ALBUTEROL [Suspect]
     Indication: ASTHMA
     Dosage: 2PUFF AS REQUIRED
     Route: 055
  2. ALBUTEROL [Suspect]
     Route: 048
  3. VENTOLIN [Suspect]
     Indication: ASTHMA
     Dosage: 2PUFF AS REQUIRED
     Route: 055
  4. SEREVENT [Concomitant]
  5. FLOVENT [Concomitant]
  6. FLONASE [Concomitant]
  7. SINGULAIR [Concomitant]
  8. CLARINEX [Concomitant]
  9. AQUATAB D [Concomitant]
  10. PRILOSEC [Concomitant]
  11. MACRODANTIN [Concomitant]
  12. AMBIEN [Concomitant]
  13. LODINE [Concomitant]
  14. ELAVIL [Concomitant]

REACTIONS (3)
  - ASTHMA [None]
  - NAUSEA [None]
  - VOMITING [None]
